FAERS Safety Report 8971372 (Version 2)
Quarter: 2012Q4

REPORT INFORMATION
  Report Type: 
  Country: FR (occurrence: FR)
  Receive Date: 20121217
  Receipt Date: 20121220
  Transmission Date: 20130627
  Serious: Yes (Other)
  Sender: FDA-Public Use
  Company Number: PHHY2012FR115088

PATIENT
  Age: 23 Year
  Sex: Female

DRUGS (1)
  1. GILENYA [Suspect]
     Indication: MULTIPLE SCLEROSIS
     Dosage: UNK
     Dates: start: 201203

REACTIONS (4)
  - Multiple sclerosis relapse [Unknown]
  - Clonus [Recovering/Resolving]
  - Nuclear magnetic resonance imaging abnormal [Unknown]
  - Lymphocyte count decreased [Unknown]
